FAERS Safety Report 5987042-X (Version None)
Quarter: 2008Q4

REPORT INFORMATION
  Report Type: 
  Country: None (occurrence: None)
  Receive Date: 20081209
  Receipt Date: 20081204
  Transmission Date: 20090506
  Serious: Yes (Life-Threatening, Hospitalization)
  Sender: FDA-Public Use
  Company Number: B0549638A

PATIENT
  Age: 45 Year
  Sex: Male

DRUGS (9)
  1. ZINACEF [Suspect]
     Indication: DRUG USE FOR UNKNOWN INDICATION
     Route: 042
     Dates: start: 20081201, end: 20081201
  2. NEXIUM [Concomitant]
     Dosage: 40MG PER DAY
  3. RENITEC COMP [Concomitant]
  4. OXYCONTIN [Concomitant]
     Dosage: 20MG TWICE PER DAY
  5. PARATABS [Concomitant]
     Dosage: 1G THREE TIMES PER DAY
  6. RIVATRIL [Concomitant]
     Dosage: .5MG FOUR TIMES PER DAY
  7. TENOX [Concomitant]
     Dosage: 20MG PER DAY
  8. CIPRALEX [Concomitant]
     Dosage: 20MG PER DAY
  9. REMERON [Concomitant]
     Dosage: 15MG PER DAY

REACTIONS (8)
  - ABDOMINAL PAIN UPPER [None]
  - ANAPHYLACTIC REACTION [None]
  - DYSGEUSIA [None]
  - HYPOTENSION [None]
  - LOSS OF CONSCIOUSNESS [None]
  - MALAISE [None]
  - NAUSEA [None]
  - PRODUCT QUALITY ISSUE [None]
